FAERS Safety Report 8231976-2 (Version None)
Quarter: 2012Q1

REPORT INFORMATION
  Report Type: 
  Country: None (occurrence: None)
  Receive Date: 20120323
  Receipt Date: 20120316
  Transmission Date: 20120608
  Serious: Yes (Hospitalization)
  Sender: FDA-Public Use
  Company Number: US-BAYER-2012-026774

PATIENT
  Age: 41 Year
  Sex: Female

DRUGS (4)
  1. YASMIN [Suspect]
  2. YAZ [Suspect]
  3. AZITHROMYCIN [Concomitant]
     Indication: BRONCHITIS
     Route: 048
  4. TYLENOL W/ CODEINE [Concomitant]
     Route: 048

REACTIONS (2)
  - DEEP VEIN THROMBOSIS [None]
  - PULMONARY EMBOLISM [None]
